FAERS Safety Report 8202075-0 (Version None)
Quarter: 2012Q1

REPORT INFORMATION
  Report Type: 
  Country: None (occurrence: None)
  Receive Date: 20120312
  Receipt Date: 20120229
  Transmission Date: 20120608
  Serious: Yes (Hospitalization, Other)
  Sender: FDA-Public Use
  Company Number: GB-MERCK-1202USA04325

PATIENT
  Age: 34 Year
  Sex: Female

DRUGS (14)
  1. DECADRON [Suspect]
     Indication: ANTIEMETIC SUPPORTIVE CARE
     Route: 048
     Dates: start: 20100907, end: 20100910
  2. TRANEXAMIC ACID [Suspect]
     Indication: PRODUCT USED FOR UNKNOWN INDICATION
     Route: 065
     Dates: start: 20100922, end: 20100928
  3. LANSOPRAZOLE [Suspect]
     Indication: GASTROOESOPHAGEAL REFLUX PROPHYLAXIS
     Route: 048
     Dates: start: 20100907, end: 20100928
  4. NORETHINDRONE [Suspect]
     Indication: HAEMATOLOGY TEST ABNORMAL
     Route: 048
     Dates: start: 20100922, end: 20100928
  5. NPLATE [Suspect]
     Indication: HAEMATOLOGY TEST ABNORMAL
     Route: 058
     Dates: start: 20100420, end: 20100920
  6. RITUXIMAB [Suspect]
     Indication: HAEMATOLOGY TEST ABNORMAL
     Dosage: 2/1 WEEKS
     Route: 042
     Dates: start: 20100917, end: 20100924
  7. TRANEXAMIC ACID [Suspect]
     Indication: HAEMATOLOGY TEST ABNORMAL
     Route: 065
     Dates: start: 20100922, end: 20100928
  8. NORETHINDRONE [Suspect]
     Indication: PRODUCT USED FOR UNKNOWN INDICATION
     Route: 048
     Dates: start: 20100922, end: 20100928
  9. IMMUNE GLOBULIN (HUMAN) [Suspect]
     Indication: PRODUCT USED FOR UNKNOWN INDICATION
     Route: 042
  10. IMMUNE GLOBULIN (HUMAN) [Suspect]
     Indication: HAEMATOLOGY TEST ABNORMAL
     Route: 042
  11. LANSOPRAZOLE [Suspect]
     Indication: HAEMATOLOGY TEST ABNORMAL
     Route: 048
     Dates: start: 20100907, end: 20100928
  12. NPLATE [Suspect]
     Indication: IDIOPATHIC THROMBOCYTOPENIC PURPURA
     Route: 058
     Dates: start: 20100420, end: 20100920
  13. DECADRON [Suspect]
     Indication: HAEMATOLOGY TEST ABNORMAL
     Route: 048
     Dates: start: 20100907, end: 20100910
  14. RITUXIMAB [Suspect]
     Dosage: 2/1 WEEKS
     Route: 042
     Dates: start: 20100917, end: 20100924

REACTIONS (8)
  - PURPURA [None]
  - HAEMOGLOBIN DECREASED [None]
  - RASH ERYTHEMATOUS [None]
  - RASH MACULO-PAPULAR [None]
  - MELAENA [None]
  - VAGINAL HAEMORRHAGE [None]
  - RECTAL HAEMORRHAGE [None]
  - HAEMORRHAGE [None]
